FAERS Safety Report 19203324 (Version 1)
Quarter: 2021Q2

REPORT INFORMATION
  Report Type: Spontaneous
  Country: US (occurrence: US)
  Receive Date: 20210503
  Receipt Date: 20210503
  Transmission Date: 20210717
  Serious: Yes (Other)
  Sender: FDA-Public Use
  Company Number: US-SA-2021SA143487

PATIENT
  Sex: Female

DRUGS (13)
  1. NUVIGIL [Concomitant]
     Active Substance: ARMODAFINIL
     Dosage: 150 MG
  2. XARELTO [Concomitant]
     Active Substance: RIVAROXABAN
     Dosage: 15 MG
  3. ORENCIA [Concomitant]
     Active Substance: ABATACEPT
  4. DUPIXENT [Suspect]
     Active Substance: DUPILUMAB
     Indication: OSTEOPOROSIS
     Dosage: 300 MG, QOW
     Route: 058
  5. ALIGN [Concomitant]
     Active Substance: BIFIDOBACTERIUM LONGUM SUBSP. INFANTIS
  6. EPINEPHRINE. [Concomitant]
     Active Substance: EPINEPHRINE
     Dosage: 3MG/0.3 AUTO INJCTOR
  7. SYNTHROID [Concomitant]
     Active Substance: LEVOTHYROXINE SODIUM
     Dosage: 125 UG
  8. VITAMIN D3 [Concomitant]
     Active Substance: CHOLECALCIFEROL
  9. PEPCID [Concomitant]
     Active Substance: FAMOTIDINE
     Dosage: 20 MG
  10. PROLIA [Concomitant]
     Active Substance: DENOSUMAB
     Dosage: SYRINGE
  11. UBIQUINOL [Concomitant]
     Active Substance: UBIQUINOL
     Dosage: 100 MG
  12. OMEPRAZOLE. [Concomitant]
     Active Substance: OMEPRAZOLE
     Dosage: 40 MG
  13. LOSARTAN POTASSIUM. [Concomitant]
     Active Substance: LOSARTAN POTASSIUM
     Dosage: 25 MG

REACTIONS (3)
  - Product use in unapproved indication [Unknown]
  - Rheumatoid arthritis [Unknown]
  - Myocardial infarction [Unknown]
